FAERS Safety Report 9812547 (Version 2)
Quarter: 2014Q1

REPORT INFORMATION
  Report Type: Report from Study
  Country: CA (occurrence: CA)
  Receive Date: 20140113
  Receipt Date: 20140113
  Transmission Date: 20141002
  Serious: Yes (Other)
  Sender: FDA-Public Use
  Company Number: CA-BRISTOL-MYERS SQUIBB COMPANY-18792804

PATIENT
  Age: 39 Year
  Sex: Female

DRUGS (20)
  1. ORENCIA [Suspect]
     Indication: RHEUMATOID ARTHRITIS
     Dosage: 1DF= 1000-UNITS NOS?3C81662;EXP:SEP2015.?2WEEKS?LAST DOSE:15JUL13,17JAN14
     Dates: start: 20130402
  2. PREDNISONE [Concomitant]
  3. CELEBREX [Concomitant]
  4. LYRICA [Concomitant]
  5. PLAQUENIL [Concomitant]
     Dates: start: 2007
  6. ATENOLOL [Concomitant]
  7. TINZAPARIN [Concomitant]
  8. DOMPERIDONE [Concomitant]
  9. ONGLYZA TABS [Concomitant]
  10. METFORMIN [Concomitant]
  11. LASIX [Concomitant]
  12. SULFATRIM [Concomitant]
  13. LORAZEPAM [Concomitant]
  14. FENTANYL PATCH [Concomitant]
  15. HYDROMORPHONE [Concomitant]
     Dosage: IG INFUSION
     Route: 042
  16. PANTOZOL [Concomitant]
  17. VESICARE [Concomitant]
  18. FLEXERIL [Concomitant]
  19. DENOSUMAB [Concomitant]
     Route: 058
  20. IVIG [Concomitant]

REACTIONS (6)
  - Skin ulcer [Unknown]
  - Nipple exudate bloody [Not Recovered/Not Resolved]
  - Wound [Unknown]
  - Pyrexia [Recovered/Resolved]
  - Influenza like illness [Recovering/Resolving]
  - Nephrolithiasis [Recovering/Resolving]
